FAERS Safety Report 4538015-5 (Version None)
Quarter: 2004Q4

REPORT INFORMATION
  Report Type: 
  Country: None (occurrence: None)
  Receive Date: 20041217
  Receipt Date: 20030624
  Transmission Date: 20050328
  Serious: Yes (Other)
  Sender: FDA-Public Use
  Company Number: 200410437BBE

PATIENT
  Sex: Male

DRUGS (9)
  1. HYPRHO-D [Suspect]
  2. INJECTABLE GLOBULIN (JOHNSON AND JOHNSON) (IMMUNOGLOBULIN) [Suspect]
  3. INJECTABLE GLOBULIN (ORTHOCLINICAL DIAGNOSTICS) (IMMUNOGLOBULINS) [Suspect]
  4. INJECTABLE GLOBULIN (AVENTIS PASTEUR) (IMMUNIOGLOBULINS) [Suspect]
  5. INJECTABLE GLOBULIN (DOW AGRO SCIENCES) (IMMUNGLOBULINS) [Suspect]
  6. INJECTABLE GLOBULINS (DOW CHEMICAL COMPANY) [Suspect]
  7. INJECTABLE GLOBULINS (GLAXOSMITHKLINE) (IMMUNOGLOBULINE) [Suspect]
  8. INJECTABLE GLOBULIN (MERC) (IMMUNOGLOBULIN) [Suspect]
  9. INJECTABLE GLOBULINE (WYETH) (IMMUNOGLOBULINS) [Suspect]

REACTIONS (3)
  - DRUG EXPOSURE DURING PREGNANCY [None]
  - METAL POISONING [None]
  - NEUROTOXICITY [None]
